FAERS Safety Report 8902265 (Version 7)
Quarter: 2013Q2

REPORT INFORMATION
  Report Type: Report from Study
  Country: TR (occurrence: TR)
  Receive Date: 20121113
  Receipt Date: 20130515
  Transmission Date: 20140414
  Serious: Yes (Hospitalization, Congenital Anomaly, Other)
  Sender: FDA-Public Use
  Company Number: PHHO2012TR015889

PATIENT
  Age: 71 Year
  Sex: Male
  Weight: 72 kg

DRUGS (11)
  1. AMN107 [Suspect]
     Indication: CHRONIC MYELOID LEUKAEMIA
     Dosage: 600 MG, QID
     Route: 048
     Dates: start: 20111128, end: 20121102
  2. AMN107 [Suspect]
     Dosage: 600 MG, QID
     Route: 048
     Dates: end: 20121218
  3. LISINOPRIL + HIDROCLOROTIAZIDA [Concomitant]
     Indication: HYPERTENSION
     Dosage: 32.5 (20.0+12.5) MG, UNK
     Dates: start: 20120113
  4. ATORVASTATIN [Concomitant]
     Indication: HYPERLIPIDAEMIA
     Dosage: 20 MG, UNK
     Dates: start: 20120113
  5. METOPROLOL [Concomitant]
     Indication: ANGINA PECTORIS
     Dosage: 25 MG, UNK
     Dates: start: 20120113
  6. ACETYLSALICYLIC ACID [Concomitant]
     Indication: ANGINA PECTORIS
     Dosage: UNK
     Dates: start: 20120113
  7. CLARITHROMYCIN [Concomitant]
     Indication: INFECTION
     Dosage: 500 MG, UNK
  8. TAMSULOSIN HYDROCHLORIDE [Concomitant]
     Indication: HYPERPLASIA
     Dosage: 0.4 MG, UNK
     Dates: start: 20121218
  9. TAMSULOSIN HYDROCHLORIDE [Concomitant]
     Indication: HYPERTENSION
  10. FAMOTIDIN [Concomitant]
     Indication: GASTRITIS
     Dosage: 40 MG, UNK
     Dates: start: 20121218
  11. ENOXAPARIN [Concomitant]
     Indication: ATRIAL FIBRILLATION
     Dosage: 60 MG, UNK

REACTIONS (3)
  - Myocardial ischaemia [Recovering/Resolving]
  - Atrial fibrillation [Recovered/Resolved]
  - Angina pectoris [Recovered/Resolved]
